FAERS Safety Report 10530108 (Version 8)
Quarter: 2017Q4

REPORT INFORMATION
  Report Type: Spontaneous
  Country: US (occurrence: US)
  Receive Date: 20141021
  Receipt Date: 20171003
  Transmission Date: 20180320
  Serious: Yes (Hospitalization, Other)
  Sender: FDA-Public Use
  Company Number: US-PFIZER INC-2014285649

PATIENT
  Age: 66 Year
  Sex: Male
  Weight: 75 kg

DRUGS (42)
  1. METFORMIN [Concomitant]
     Active Substance: METFORMIN HYDROCHLORIDE
     Dosage: 1000 MG, 2X/DAY (500MG TWO TABLETS BY MOUTH TWICE A DAY)
     Route: 048
  2. RAPAMUNE [Concomitant]
     Active Substance: SIROLIMUS
     Indication: LIVER TRANSPLANT REJECTION
     Dosage: 4 MG, DAILY (1MG FOUR TABLETS BY MOUTH DAILY)
     Route: 048
  3. RAPAMUNE [Concomitant]
     Active Substance: SIROLIMUS
     Dosage: 3 MG, 1X/DAY, (1MG TABLET; 3MG A DAY)
  4. FOLIC ACID. [Concomitant]
     Active Substance: FOLIC ACID
     Dosage: 1 MG, 3X/DAY
  5. CALCIUM CITRATE [Concomitant]
     Active Substance: CALCIUM CITRATE
     Indication: BLOOD CALCIUM DECREASED
     Dosage: 1260 MG, 1X/DAY
  6. CINNAMON. [Concomitant]
     Active Substance: CINNAMON
     Indication: BLOOD GLUCOSE ABNORMAL
     Dosage: 1 G, 3X/DAY
  7. PRAVASTATIN. [Concomitant]
     Active Substance: PRAVASTATIN
     Indication: BLOOD CHOLESTEROL ABNORMAL
     Dosage: 20 MG, 1X/DAY
  8. SUTENT [Suspect]
     Active Substance: SUNITINIB MALATE
     Dosage: 37.5 MG, 1X/DAY
  9. METFORMIN [Concomitant]
     Active Substance: METFORMIN HYDROCHLORIDE
     Indication: DIABETES MELLITUS
     Dosage: 500 MG, 2X/DAY
  10. WARFARIN SODIUM. [Concomitant]
     Active Substance: WARFARIN SODIUM
     Dosage: UNK
  11. IRON [Concomitant]
     Active Substance: IRON
     Indication: GASTROINTESTINAL HAEMORRHAGE
     Dosage: 65 MG, 1X/DAY
  12. CARAFATE [Concomitant]
     Active Substance: SUCRALFATE
     Dosage: 1 G, 2X/DAY
     Route: 048
  13. AMLODIPINE BESYLATE. [Concomitant]
     Active Substance: AMLODIPINE BESYLATE
     Indication: BLOOD PRESSURE MEASUREMENT
     Dosage: 10 MG, 1X/DAY, (TWO 5MG A DAY)
  14. ACIDOPHILUS [Concomitant]
     Active Substance: LACTOBACILLUS ACIDOPHILUS
     Indication: PROBIOTIC THERAPY
     Dosage: 175 MG, 1X/DAY
  15. SUTENT [Suspect]
     Active Substance: SUNITINIB MALATE
     Dosage: 37.5 MG, 1X/DAY
     Route: 048
     Dates: start: 201401, end: 20140904
  16. SUTENT [Suspect]
     Active Substance: SUNITINIB MALATE
     Dosage: 37.5 MG, 1X/DAY
     Route: 048
     Dates: start: 20140927, end: 20150803
  17. TRESIBA [Concomitant]
     Active Substance: INSULIN DEGLUDEC
     Indication: DIABETES MELLITUS
     Dosage: UNK UNK, AS NEEDED, (INJECTION AS NEEDED ONCE A DAY)
  18. BETHANECHOL [Concomitant]
     Active Substance: BETHANECHOL
     Indication: BLADDER DISORDER
     Dosage: 25 MG, 4X/DAY
  19. COCONUT OIL [Concomitant]
     Active Substance: COCONUT OIL
     Indication: GASTROOESOPHAGEAL REFLUX DISEASE
     Dosage: 2 G, 1X/DAY
  20. COUMADIN [Concomitant]
     Active Substance: WARFARIN SODIUM
     Indication: THROMBOSIS
     Dosage: 3 MG, EVERY MONDAY, WEDNESDAY, AND FRIDAY
  21. VITAMIN D3 [Concomitant]
     Active Substance: CHOLECALCIFEROL
     Dosage: 2000 IU, 1X/DAY
  22. GLUCOSAMINE CHONDROITIN + MSM [Concomitant]
     Active Substance: CHONDROITIN SULFATE (BOVINE)\DIMETHYL SULFONE\GLUCOSAMINE SULFATE
     Indication: ARTHRALGIA
     Dosage: 1500 MG, 1X/DAY
  23. SUTENT [Suspect]
     Active Substance: SUNITINIB MALATE
     Dosage: 37.5 MG, 1X/DAY
     Route: 048
     Dates: start: 201402
  24. SUTENT [Suspect]
     Active Substance: SUNITINIB MALATE
     Dosage: 37.5 MG, DAILY
  25. OCTREOTIDE. [Concomitant]
     Active Substance: OCTREOTIDE
     Indication: NEOPLASM PROGRESSION
     Dosage: UNK, MONTHLY, (SHOT ONCE MONTH)
     Dates: start: 2005
  26. SLOW MAG [Concomitant]
     Active Substance: MAGNESIUM CHLORIDE
     Indication: BLOOD MAGNESIUM DECREASED
     Dosage: 286 MG, 1X/DAY
  27. SANDOSTATIN [Concomitant]
     Active Substance: OCTREOTIDE ACETATE
     Dosage: 4 MG, UNK
  28. PROBIOTIC FORMULA [Concomitant]
     Dosage: UNK
  29. COUMADIN [Concomitant]
     Active Substance: WARFARIN SODIUM
     Dosage: 4 MG, EVERY SUNDAY, TUESDAY, THURSDAY, AND SATURDAY
  30. NOVOLOG [Concomitant]
     Active Substance: INSULIN ASPART
     Indication: DIABETES MELLITUS
     Dosage: UNK, AS NEEDED, (DOSE DEPENDS ON NEED)
  31. PROTONIX [Concomitant]
     Active Substance: PANTOPRAZOLE SODIUM
     Indication: GASTROOESOPHAGEAL REFLUX DISEASE
     Dosage: 40 MG, 4X/DAY
  32. FISH OIL [Concomitant]
     Active Substance: FISH OIL
     Dosage: 2400 MG, 1X/DAY
  33. PANTOPRAZOLE [Concomitant]
     Active Substance: PANTOPRAZOLE
     Dosage: 80 MG, 2X/DAY, (40MG TWO TABLETS BY MOUTH TWICE A DAY)
  34. PRAVACHOL [Concomitant]
     Active Substance: PRAVASTATIN SODIUM
     Dosage: UNK
  35. PANTOPRAZOLE SODIUM. [Concomitant]
     Active Substance: PANTOPRAZOLE SODIUM
     Dosage: UNK
  36. SUTENT [Suspect]
     Active Substance: SUNITINIB MALATE
     Indication: GASTRINOMA
     Dosage: 37.5 MG, 1X/DAY
     Route: 048
     Dates: start: 201302, end: 201401
  37. SANDOSTATIN [Concomitant]
     Active Substance: OCTREOTIDE ACETATE
     Indication: NEOPLASM PROGRESSION
     Dosage: 3 MG, MONTHLY
     Route: 030
     Dates: start: 200205, end: 200310
  38. SANDOSTATIN [Concomitant]
     Active Substance: OCTREOTIDE ACETATE
     Indication: MALIGNANT NEOPLASM OF ISLETS OF LANGERHANS
     Dosage: UNK
     Dates: start: 200606
  39. TRADJENTA [Concomitant]
     Active Substance: LINAGLIPTIN
     Indication: DIABETES MELLITUS
     Dosage: 5 MG, DAILY
     Route: 048
  40. IMODIUM A-D [Concomitant]
     Active Substance: LOPERAMIDE HYDROCHLORIDE
     Dosage: UNK
  41. CALCIUM + DVITAMIN D3 [Concomitant]
     Dosage: UNK
  42. IMMODIN [Concomitant]
     Indication: DIARRHOEA
     Dosage: UNK, AS NEEDED

REACTIONS (12)
  - Blister [Unknown]
  - Pain in extremity [Recovered/Resolved]
  - Nausea [Unknown]
  - Hyperkeratosis [Unknown]
  - Blood pressure increased [Not Recovered/Not Resolved]
  - Large intestinal haemorrhage [Recovered/Resolved]
  - Haemoglobin decreased [Recovered/Resolved]
  - Gastric haemorrhage [Recovered/Resolved]
  - Gastric disorder [Recovered/Resolved]
  - Diarrhoea [Unknown]
  - Gastrinoma [Not Recovered/Not Resolved]
  - Disease progression [Not Recovered/Not Resolved]

NARRATIVE: CASE EVENT DATE: 201302
